FAERS Safety Report 9395780 (Version 4)
Quarter: 2013Q4

REPORT INFORMATION
  Report Type: Report from Study
  Country: GB (occurrence: DK)
  Receive Date: 20130711
  Receipt Date: 20131029
  Transmission Date: 20140711
  Serious: Yes (Hospitalization, Other)
  Sender: FDA-Public Use
  Company Number: GB-BAYER-2013-082835

PATIENT
  Age: 74 Year
  Sex: Male
  Weight: 93.5 kg

DRUGS (17)
  1. XARELTO [Suspect]
     Indication: CEREBROVASCULAR ACCIDENT PROPHYLAXIS
     Dosage: 15 MG, QD
     Dates: start: 20130222, end: 20130728
  2. XARELTO [Suspect]
     Indication: ATRIAL FIBRILLATION
  3. ZARATOR [Concomitant]
     Dosage: 80 MG, UNK
     Dates: start: 20120504, end: 20130228
  4. CALCIUM W/VITAMIN D NOS [Concomitant]
     Dosage: DAILY DOSE 400 MG
     Dates: start: 20120528
  5. CARVEDILOL [Concomitant]
     Dosage: 25 MG, UNK
     Dates: start: 20120706
  6. ASPIRIN [Concomitant]
     Dosage: 75 MG, UNK
     Dates: start: 20120606
  7. NOVONORM [Concomitant]
     Dosage: 4 MG, UNK
     Dates: start: 20120715, end: 20130701
  8. SPIRON [RISPERIDONE] [Concomitant]
     Dosage: 25 MG, UNK
     Dates: start: 20120814, end: 20130809
  9. DIGOXIN [Concomitant]
     Dosage: 62.5 ?G, UNK
     Dates: start: 20120814
  10. IMACILLIN [Concomitant]
     Dosage: 2 G, UNK
     Dates: start: 20121025
  11. FURIX [Concomitant]
     Dosage: 160 MG, UNK
     Dates: start: 20130201
  12. KALEORID [Concomitant]
     Dosage: 1500 MG, UNK
     Dates: start: 20130201
  13. CORODIL [Concomitant]
     Dosage: 5 MG, UNK
     Dates: start: 20120620
  14. PANTOPRAZOLE [Concomitant]
     Dosage: 40 MG, UNK
     Dates: start: 20130618
  15. INSULATARD [Concomitant]
     Dosage: 42 IU, UNK
     Dates: start: 20130626
  16. PHENERGAN [Concomitant]
     Dosage: 25 MG, UNK
     Dates: start: 20130623
  17. MAREVAN [Concomitant]
     Dosage: 5 MG, UNK
     Dates: start: 20130725

REACTIONS (3)
  - Myocardial infarction [Recovered/Resolved]
  - Duodenal ulcer haemorrhage [Recovered/Resolved]
  - Asthenia [Recovering/Resolving]
